FAERS Safety Report 24042576 (Version 1)
Quarter: 2024Q3

REPORT INFORMATION
  Report Type: Spontaneous
  Country: US (occurrence: US)
  Receive Date: 20240702
  Receipt Date: 20240702
  Transmission Date: 20241016
  Serious: Yes (Other)
  Sender: INTRA-CELLULAR THERAPIES
  Company Number: US-INTRA-CELLULAR THERAPIES, INC.-2024ICT00624

PATIENT
  Sex: Male

DRUGS (2)
  1. CAPLYTA [Suspect]
     Active Substance: LUMATEPERONE
     Dosage: 42 MG, 1X/DAY
  2. COCAINE [Suspect]
     Active Substance: COCAINE
     Dosage: UNK

REACTIONS (1)
  - Seizure [Unknown]
